FAERS Safety Report 16485287 (Version 2)
Quarter: 2019Q3

REPORT INFORMATION
  Report Type: Spontaneous
  Country: KR (occurrence: KR)
  Receive Date: 20190627
  Receipt Date: 20190716
  Transmission Date: 20191004
  Serious: Yes (Death, Hospitalization, Other)
  Sender: FDA-Public Use
  Company Number: KR-009507513-1906KOR008523

PATIENT
  Sex: Female

DRUGS (19)
  1. ALDACTONE [Concomitant]
     Active Substance: SPIRONOLACTONE
     Dosage: QUANTITY: 1, DAYS: 21
     Route: 048
     Dates: start: 20190531
  2. SODIUM CHLORIDE. [Concomitant]
     Active Substance: SODIUM CHLORIDE
     Dosage: STRENGTH: 100 ML, QUANTITY: 1, DAYS: 1
     Dates: start: 20190531, end: 20190531
  3. MEGACE F [Concomitant]
     Dosage: QUANTITY: 1, DAYS: 21
     Dates: start: 20190531
  4. CODEINE PHOSPHATE [Concomitant]
     Active Substance: CODEINE PHOSPHATE
     Dosage: QUANTITY: 2, DAYS: 21
     Route: 048
     Dates: start: 20190531
  5. TRIDOL (TRAMADOL HYDROCHLORIDE) [Concomitant]
     Dosage: QUANTITY: 1, DAYS: 1
     Dates: start: 20190523, end: 20190523
  6. TASNA [Concomitant]
     Dosage: QUANTITY: 3, DAYS: 1
     Route: 048
     Dates: start: 20190522, end: 20190522
  7. KEYTRUDA [Suspect]
     Active Substance: PEMBROLIZUMAB
     Indication: NON-SMALL CELL LUNG CANCER METASTATIC
     Dosage: UNK
     Dates: start: 20190510, end: 20190510
  8. ERDOS [Concomitant]
     Active Substance: ERDOSTEINE
     Dosage: QUANTITY: 3, DAYS: 21
     Route: 048
     Dates: start: 20190531
  9. LASIX [Concomitant]
     Active Substance: FUROSEMIDE
     Dosage: QUANTITY: 0,5, DAYS: 21
     Route: 048
     Dates: start: 20190531
  10. LEVOTUSS [Concomitant]
     Active Substance: LEVODROPROPIZINE
     Dosage: QUANTITY: 3, DAYS: 21
     Route: 048
     Dates: start: 20190531
  11. SODIUM CHLORIDE. [Concomitant]
     Active Substance: SODIUM CHLORIDE
     Dosage: CONCENTRATION: 0.9%, 1000 ML, QUANTITY: 6, DAYS: 1
     Dates: start: 20190514, end: 20190522
  12. COLCHIN [Concomitant]
     Dosage: QUANTITY: 1, DAYS: 21
     Route: 048
     Dates: start: 20190531
  13. KEYTRUDA [Suspect]
     Active Substance: PEMBROLIZUMAB
     Dosage: QUANTITY: 2, DAYS: 1
     Dates: start: 20190531, end: 20190531
  14. LASIX [Concomitant]
     Active Substance: FUROSEMIDE
     Dosage: QUANTITY: 4, DAYS: 1
     Route: 048
     Dates: start: 20190514, end: 20190524
  15. LIDOCAINE. [Suspect]
     Active Substance: LIDOCAINE
     Dosage: QUANTITY: 1; DAYS: 1
     Dates: start: 20190516
  16. STILNOX [Concomitant]
     Active Substance: ZOLPIDEM TARTRATE
     Dosage: QUANTITY: 2, DAYS: 1
     Route: 048
     Dates: start: 20190527, end: 20190530
  17. STILNOX [Concomitant]
     Active Substance: ZOLPIDEM TARTRATE
     Dosage: QUANTITY: 0,5, DAYS: 21
     Route: 048
     Dates: start: 20190531
  18. ANYCOUGH [Concomitant]
     Active Substance: THEOBROMINE
     Dosage: QUANTITY: 2, DAYS: 21
     Dates: start: 20190531
  19. SODIUM CHLORIDE. [Concomitant]
     Active Substance: SODIUM CHLORIDE
     Dosage: STRENGTH: 500 ML, QUANTITY: 2, DAYS: 1
     Dates: start: 20190517, end: 20190518

REACTIONS (2)
  - Adverse event [Unknown]
  - Malignant neoplasm progression [Fatal]

NARRATIVE: CASE EVENT DATE: 2019
